FAERS Safety Report 10512202 (Version 1)
Quarter: 2014Q4

REPORT INFORMATION
  Report Type: Spontaneous
  Country: US (occurrence: US)
  Receive Date: 20141010
  Receipt Date: 20141010
  Transmission Date: 20150528
  Serious: Yes (Other)
  Sender: FDA-Public Use
  Company Number: US-ASTRAZENECA-2014SE74473

PATIENT
  Age: 51 Year
  Sex: Female
  Weight: 57.2 kg

DRUGS (13)
  1. SYMBICORT [Suspect]
     Active Substance: BUDESONIDE\FORMOTEROL FUMARATE DIHYDRATE
     Indication: ASTHMA
     Dosage: 160 4.5 2 PUFFS BID
     Route: 055
  2. GENERIC SINGULAIR [Concomitant]
     Active Substance: MONTELUKAST SODIUM
  3. PROAIR HFA [Concomitant]
     Active Substance: ALBUTEROL SULFATE
     Dates: start: 2001
  4. THREE INHALERS [Suspect]
     Active Substance: UNSPECIFIED INGREDIENT
     Route: 055
  5. UNSPECIFIED NASAL SPRAY [Concomitant]
     Active Substance: UNSPECIFIED INGREDIENT
     Dosage: DAILY
  6. GENERIC ZYRTEC [Concomitant]
  7. LISINOPRIL. [Suspect]
     Active Substance: LISINOPRIL
     Indication: HYPERTENSION
     Route: 048
     Dates: start: 2010
  8. MACHINE WITH ALBUTEROL [Concomitant]
  9. SPIRIVA [Concomitant]
     Active Substance: TIOTROPIUM BROMIDE MONOHYDRATE
  10. SYMBICORT [Suspect]
     Active Substance: BUDESONIDE\FORMOTEROL FUMARATE DIHYDRATE
     Indication: CHRONIC OBSTRUCTIVE PULMONARY DISEASE
     Dosage: 160 4.5 2 PUFFS BID
     Route: 055
  11. ANASTROZOLE. [Suspect]
     Active Substance: ANASTROZOLE
     Indication: BREAST CANCER
     Route: 048
     Dates: start: 201311
  12. SYMBICORT [Suspect]
     Active Substance: BUDESONIDE\FORMOTEROL FUMARATE DIHYDRATE
     Indication: EMPHYSEMA
     Dosage: 160 4.5 2 PUFFS BID
     Route: 055
  13. THEOPHYLLINE [Concomitant]
     Active Substance: THEOPHYLLINE ANHYDROUS
     Dates: start: 2014

REACTIONS (6)
  - Eye disorder [Not Recovered/Not Resolved]
  - Breast cancer recurrent [Unknown]
  - Autoimmune thyroiditis [Not Recovered/Not Resolved]
  - Dyspnoea [Not Recovered/Not Resolved]
  - Wrong technique in drug usage process [Unknown]
  - Breast cancer female [Recovered/Resolved]

NARRATIVE: CASE EVENT DATE: 2003
